FAERS Safety Report 19452485 (Version 1)
Quarter: 2021Q2

REPORT INFORMATION
  Report Type: Spontaneous
  Country: CA (occurrence: CA)
  Receive Date: 20210623
  Receipt Date: 20210623
  Transmission Date: 20210717
  Serious: Yes (Hospitalization, Other)
  Sender: FDA-Public Use
  Company Number: CA-HLS-202107760

PATIENT
  Age: 44 Year
  Sex: Male

DRUGS (22)
  1. VENLAFAXINE [Suspect]
     Active Substance: VENLAFAXINE HYDROCHLORIDE
     Indication: MAJOR DEPRESSION
     Route: 065
  2. APO?CLOZAPINE [Suspect]
     Active Substance: CLOZAPINE
     Indication: PRODUCT USED FOR UNKNOWN INDICATION
     Route: 048
  3. CLOZAPINE. [Suspect]
     Active Substance: CLOZAPINE
     Indication: MAJOR DEPRESSION
     Route: 065
  4. RISPERIDONE. [Suspect]
     Active Substance: RISPERIDONE
     Indication: MAJOR DEPRESSION
     Route: 065
  5. CLOZAPINE. [Suspect]
     Active Substance: CLOZAPINE
     Indication: MAJOR DEPRESSION
     Route: 048
  6. APO?CLOZAPINE [Suspect]
     Active Substance: CLOZAPINE
     Indication: PRODUCT USED FOR UNKNOWN INDICATION
     Route: 065
  7. APO?CLOZAPINE [Suspect]
     Active Substance: CLOZAPINE
     Indication: PRODUCT USED FOR UNKNOWN INDICATION
     Route: 046
  8. CLOZAPINE. [Suspect]
     Active Substance: CLOZAPINE
     Indication: MAJOR DEPRESSION
     Route: 065
  9. OLANZAPINE. [Suspect]
     Active Substance: OLANZAPINE
     Indication: MAJOR DEPRESSION
     Route: 065
  10. APO?CLOZAPINE [Suspect]
     Active Substance: CLOZAPINE
     Indication: PRODUCT USED FOR UNKNOWN INDICATION
     Route: 065
  11. APO?CLOZAPINE [Suspect]
     Active Substance: CLOZAPINE
     Indication: PRODUCT USED FOR UNKNOWN INDICATION
     Route: 048
  12. APO?CLOZAPINE [Suspect]
     Active Substance: CLOZAPINE
     Indication: PRODUCT USED FOR UNKNOWN INDICATION
     Route: 065
  13. APO?CLOZAPINE [Suspect]
     Active Substance: CLOZAPINE
     Indication: PRODUCT USED FOR UNKNOWN INDICATION
     Route: 066
  14. CLOZAPINE. [Suspect]
     Active Substance: CLOZAPINE
     Indication: MAJOR DEPRESSION
     Route: 065
  15. CLOZAPINE. [Suspect]
     Active Substance: CLOZAPINE
     Indication: MAJOR DEPRESSION
     Route: 065
  16. QUETIAPINE. [Suspect]
     Active Substance: QUETIAPINE
     Indication: MAJOR DEPRESSION
     Dosage: 4 EVERY 1 DAYS
     Route: 048
  17. HALOPERIDOL. [Suspect]
     Active Substance: HALOPERIDOL
     Indication: MAJOR DEPRESSION
     Route: 065
  18. CLOZAPINE. [Suspect]
     Active Substance: CLOZAPINE
     Indication: MAJOR DEPRESSION
     Route: 065
  19. VENLAFAXINE [Suspect]
     Active Substance: VENLAFAXINE HYDROCHLORIDE
     Indication: MAJOR DEPRESSION
     Route: 065
  20. QUETIAPINE. [Suspect]
     Active Substance: QUETIAPINE
     Indication: MAJOR DEPRESSION
     Route: 048
  21. CLOZAPINE. [Suspect]
     Active Substance: CLOZAPINE
     Indication: MAJOR DEPRESSION
     Route: 065
  22. APO?CLOZAPINE [Suspect]
     Active Substance: CLOZAPINE
     Indication: PRODUCT USED FOR UNKNOWN INDICATION
     Route: 048

REACTIONS (10)
  - Abdominal pain [Unknown]
  - Gastric infection [Unknown]
  - Salivary hypersecretion [Unknown]
  - Constipation [Unknown]
  - Muscle rigidity [Unknown]
  - Product use in unapproved indication [Unknown]
  - Retching [Unknown]
  - Rebound effect [Unknown]
  - Pain [Unknown]
  - Sedation [Unknown]
